FAERS Safety Report 7480307-4 (Version None)
Quarter: 2011Q2

REPORT INFORMATION
  Report Type: 
  Country: None (occurrence: None)
  Receive Date: 20110512
  Receipt Date: 20110512
  Transmission Date: 20111010
  Serious: No
  Sender: FDA-Public Use
  Company Number: None

PATIENT
  Age: 70 Year
  Sex: Male

DRUGS (2)
  1. DILANTIN [Suspect]
     Indication: THROMBOSIS
     Dosage: 50 MG 2X A DAY
     Dates: start: 20110218
  2. DILANTIN [Suspect]
     Indication: THROMBOSIS
     Dosage: 50 MG 2X A DAY
     Dates: start: 20110108

REACTIONS (1)
  - RHEUMATOID ARTHRITIS [None]
